FAERS Safety Report 14000613 (Version 1)
Quarter: 2017Q3

REPORT INFORMATION
  Report Type: Spontaneous
  Country: FR (occurrence: FR)
  Receive Date: 20170922
  Receipt Date: 20170922
  Transmission Date: 20171128
  Serious: Yes (Death, Hospitalization, Other)
  Sender: FDA-Public Use
  Company Number: FR-BRISTOL-MYERS SQUIBB COMPANY-BMS-2017-083535

PATIENT
  Age: 74 Year
  Sex: Female

DRUGS (1)
  1. OPDIVO [Suspect]
     Active Substance: NIVOLUMAB
     Indication: LUNG ADENOCARCINOMA
     Dosage: 270 MG, QCYCLE
     Route: 042
     Dates: start: 20170317

REACTIONS (3)
  - Encephalitis [Unknown]
  - Lung disorder [Fatal]
  - Skin infection [Fatal]

NARRATIVE: CASE EVENT DATE: 20170810
